FAERS Safety Report 4519469-7 (Version None)
Quarter: 2004Q4

REPORT INFORMATION
  Report Type: 
  Country: None (occurrence: None)
  Receive Date: 20041202
  Receipt Date: 20041124
  Transmission Date: 20050328
  Serious: Yes (Life-Threatening)
  Sender: FDA-Public Use
  Company Number: 2004AP05983

PATIENT
  Age: 94 Year
  Sex: Female

DRUGS (1)
  1. CARBOCAIN [Suspect]
     Indication: NERVE BLOCK
     Dosage: 25 ML
     Dates: start: 20041122, end: 20041122

REACTIONS (1)
  - THERAPEUTIC AGENT TOXICITY [None]
